FAERS Safety Report 7039794-8 (Version None)
Quarter: 2010Q4

REPORT INFORMATION
  Report Type: 
  Country: None (occurrence: None)
  Receive Date: 20101012
  Receipt Date: 20101001
  Transmission Date: 20110411
  Serious: Yes (Other)
  Sender: FDA-Public Use
  Company Number: CA-MERCK-1010USA00383

PATIENT
  Age: 65 Year
  Sex: Female
  Weight: 45 kg

DRUGS (8)
  1. FOSAMAX [Suspect]
     Route: 048
  2. CARBOCAL D [Concomitant]
     Route: 065
  3. CENTRUM [Concomitant]
     Route: 048
  4. FLOVENT [Concomitant]
     Route: 065
  5. IMOVANE [Concomitant]
     Route: 048
  6. MONOCOR [Concomitant]
     Route: 048
  7. ADRIEN GAGNON OMEGA 3-6-9 [Concomitant]
     Route: 048
  8. TYLENOL [Concomitant]
     Route: 065

REACTIONS (2)
  - ABDOMINAL DISCOMFORT [None]
  - FAECES DISCOLOURED [None]
